FAERS Safety Report 13994796 (Version 1)
Quarter: 2017Q3

REPORT INFORMATION
  Report Type: Spontaneous
  Country: SG (occurrence: None)
  Receive Date: 20170921
  Receipt Date: 20170921
  Transmission Date: 20171128
  Serious: Yes (Hospitalization)
  Sender: FDA-Public Use
  Company Number: None

PATIENT
  Age: 56 Year
  Sex: Female
  Weight: 72.4 kg

DRUGS (2)
  1. CISPLATIN. [Suspect]
     Active Substance: CISPLATIN
     Dates: end: 20170705
  2. ENALAPRIL [Concomitant]
     Active Substance: ENALAPRIL

REACTIONS (18)
  - Hypophagia [None]
  - Nausea [None]
  - Productive cough [None]
  - Transaminases increased [None]
  - Oropharyngeal pain [None]
  - Diarrhoea [None]
  - Liver injury [None]
  - Restlessness [None]
  - Pyrexia [None]
  - Dysuria [None]
  - Viral infection [None]
  - Vomiting [None]
  - Constipation [None]
  - Mouth ulceration [None]
  - Abdominal pain [None]
  - Drug interaction [None]
  - Aspartate aminotransferase increased [None]
  - Alanine aminotransferase increased [None]

NARRATIVE: CASE EVENT DATE: 20170806
